FAERS Safety Report 7910635-7 (Version None)
Quarter: 2011Q4

REPORT INFORMATION
  Report Type: 
  Country: None (occurrence: None)
  Receive Date: 20111111
  Receipt Date: 20111108
  Transmission Date: 20120403
  Serious: Yes (Hospitalization, Other)
  Sender: FDA-Public Use
  Company Number: GB-AMGEN-GBRCT2011058297

PATIENT
  Age: 41 Year
  Sex: Female

DRUGS (5)
  1. EPIRUBICIN [Concomitant]
     Dosage: 150 MG, Q3WK
     Route: 042
     Dates: start: 20110826
  2. CYCLOPHOSPHAMIDE [Concomitant]
     Dosage: 1200 MG, Q3WK
     Route: 042
     Dates: start: 20110826
  3. BLINDED DENOSUMAB [Suspect]
     Indication: BREAST CANCER
     Dosage: UNK UNK, Q3WK
     Route: 058
     Dates: start: 20110826
  4. BLINDED PLACEBO [Suspect]
     Indication: BREAST CANCER
     Dosage: UNK UNK, Q3WK
     Route: 058
     Dates: start: 20110826
  5. FLUOROURACIL [Concomitant]
     Dosage: 1200 MG, Q3WK
     Route: 042
     Dates: start: 20110826

REACTIONS (2)
  - HEADACHE [None]
  - VOMITING [None]
